FAERS Safety Report 14419493 (Version 1)
Quarter: 2018Q1

REPORT INFORMATION
  Report Type: Not Available
  Country: US (occurrence: US)
  Receive Date: 20180122
  Receipt Date: 20180122
  Transmission Date: 20180509
  Serious: No
  Sender: FDA-Public Use
  Company Number: US-NEUROCRINE BIOSCIENCES INC.-2017NBI01790

PATIENT
  Age: 91 Year
  Sex: Female

DRUGS (1)
  1. INGREZZA [Suspect]
     Active Substance: VALBENAZINE
     Indication: TARDIVE DYSKINESIA
     Route: 048
     Dates: start: 20170909, end: 20171106

REACTIONS (3)
  - Inappropriate schedule of drug administration [Recovered/Resolved]
  - Memory impairment [Not Recovered/Not Resolved]
  - Indifference [Not Recovered/Not Resolved]

NARRATIVE: CASE EVENT DATE: 20170909
